FAERS Safety Report 21516884 (Version 2)
Quarter: 2022Q4

REPORT INFORMATION
  Report Type: Spontaneous
  Country: JP (occurrence: JP)
  Receive Date: 20221028
  Receipt Date: 20221116
  Transmission Date: 20230113
  Serious: Yes (Other)
  Sender: FDA-Public Use
  Company Number: JP-002147023-NVSJ2022JP099634

PATIENT
  Age: 83 Year
  Sex: Male

DRUGS (2)
  1. LUCENTIS [Suspect]
     Active Substance: RANIBIZUMAB
     Indication: Neovascular age-related macular degeneration
     Dosage: LEFT EYE
     Route: 050
     Dates: start: 20210128
  2. LUCENTIS [Suspect]
     Active Substance: RANIBIZUMAB
     Dosage: LEFT EYE
     Route: 050
     Dates: start: 20210225, end: 20210225

REACTIONS (3)
  - Serous retinal detachment [Recovering/Resolving]
  - Retinal oedema [Recovering/Resolving]
  - Concomitant disease aggravated [Recovering/Resolving]
